FAERS Safety Report 16142106 (Version 1)
Quarter: 2019Q1

REPORT INFORMATION
  Report Type: Spontaneous
  Country: US (occurrence: US)
  Receive Date: 20190226
  Receipt Date: 20190226
  Transmission Date: 20190418
  Serious: Yes (Other)
  Sender: FDA-Public Use
  Company Number: None

PATIENT
  Age: 66 Year
  Sex: Female
  Weight: 86.18 kg

DRUGS (1)
  1. RUBRACA [Suspect]
     Active Substance: RUCAPARIB CAMSYLATE
     Indication: OVARIAN CANCER
     Dosage: ?          QUANTITY:300 MG MILLIGRAM(S);?
     Route: 048
     Dates: start: 20181210

REACTIONS (7)
  - Speech disorder [None]
  - Jaw disorder [None]
  - Tongue discomfort [None]
  - Tongue discolouration [None]
  - Glossodynia [None]
  - Hypophagia [None]
  - Lip discolouration [None]

NARRATIVE: CASE EVENT DATE: 20190102
